FAERS Safety Report 8198910-5 (Version None)
Quarter: 2012Q1

REPORT INFORMATION
  Report Type: 
  Country: None (occurrence: None)
  Receive Date: 20120309
  Receipt Date: 20120223
  Transmission Date: 20120608
  Serious: Yes (Other)
  Sender: FDA-Public Use
  Company Number: US-AMGEN-USASP2011048777

PATIENT
  Age: 78 Year
  Sex: Female
  Weight: 47.166 kg

DRUGS (8)
  1. ASPIRIN [Concomitant]
  2. KLOR-CON [Concomitant]
     Dosage: 40 MEQ, QD
     Route: 048
  3. ZOVIRAX                            /00587301/ [Concomitant]
     Dosage: 5 %, PRN
     Route: 061
  4. PROLIA [Suspect]
     Indication: OSTEOPOROSIS POSTMENOPAUSAL
     Dosage: 60 MG, Q6MO
     Route: 058
     Dates: start: 20110315, end: 20110912
  5. ACYCLOVIR [Concomitant]
     Dosage: 800 MG, UNK
     Route: 048
  6. OSCAL                              /00108001/ [Concomitant]
  7. NISTATIN [Concomitant]
     Dosage: 100000 IU, PRN
     Route: 061
  8. KLOR-CON [Concomitant]
     Dosage: 8 MEQ, UNK

REACTIONS (8)
  - POST HERPETIC NEURALGIA [None]
  - PAIN OF SKIN [None]
  - DERMATITIS [None]
  - HERPES ZOSTER [None]
  - RASH ERYTHEMATOUS [None]
  - DRUG ERUPTION [None]
  - RASH PRURITIC [None]
  - RASH MACULO-PAPULAR [None]
